FAERS Safety Report 6589105-7 (Version None)
Quarter: 2010Q1

REPORT INFORMATION
  Report Type: 
  Country: None (occurrence: None)
  Receive Date: 20100212
  Receipt Date: 20100125
  Transmission Date: 20100710
  Serious: Yes (Other)
  Sender: FDA-Public Use
  Company Number: 2009-01639

PATIENT
  Age: 74 Year
  Sex: Male

DRUGS (4)
  1. VELCADE [Suspect]
     Indication: MULTIPLE MYELOMA
     Dosage: INTRAVENOUS
     Route: 042
     Dates: start: 20050926, end: 20060227
  2. VELCADE [Suspect]
     Indication: MULTIPLE MYELOMA
     Dosage: INTRAVENOUS
     Route: 042
     Dates: start: 20080131, end: 20080630
  3. VELCADE [Suspect]
     Indication: MULTIPLE MYELOMA
     Dosage: INTRAVENOUS
     Route: 042
     Dates: start: 20090416, end: 20090416
  4. BISPHOSPHONATES () [Suspect]
     Indication: DRUG USE FOR UNKNOWN INDICATION
     Dosage: INTRAVENOUS
     Route: 042
     Dates: start: 20060401, end: 20090430

REACTIONS (12)
  - ALVEOLITIS [None]
  - ANAEMIA [None]
  - BACK PAIN [None]
  - CHEST PAIN [None]
  - CLUBBING [None]
  - DYSPNOEA EXERTIONAL [None]
  - MUCOUS MEMBRANE DISORDER [None]
  - OBSTRUCTION [None]
  - PANIC ATTACK [None]
  - PO2 DECREASED [None]
  - PULMONARY FIBROSIS [None]
  - RESPIRATORY FAILURE [None]
